FAERS Safety Report 7366153-0 (Version None)
Quarter: 2011Q1

REPORT INFORMATION
  Report Type: 
  Country: None (occurrence: None)
  Receive Date: 20110317
  Receipt Date: 20110317
  Transmission Date: 20110831
  Serious: No
  Sender: FDA-Public Use
  Company Number: None

PATIENT
  Age: 36 Year
  Sex: Male
  Weight: 86.1834 kg

DRUGS (2)
  1. FENTANYL [Suspect]
     Indication: INTERVERTEBRAL DISC DEGENERATION
     Dosage: 200/MCG/H 48HRS TRANSDERMAL
     Route: 062
     Dates: start: 20110311, end: 20110315
  2. FENTANYL [Suspect]
     Indication: PAIN
     Dosage: 200/MCG/H 48HRS TRANSDERMAL
     Route: 062
     Dates: start: 20110311, end: 20110315

REACTIONS (4)
  - DRUG EFFECT DECREASED [None]
  - PRODUCT MEASURED POTENCY ISSUE [None]
  - DRUG WITHDRAWAL SYNDROME [None]
  - PRODUCT SUBSTITUTION ISSUE [None]
